FAERS Safety Report 6381911-7 (Version None)
Quarter: 2009Q3

REPORT INFORMATION
  Report Type: 
  Country: None (occurrence: None)
  Receive Date: 20090930
  Receipt Date: 20090915
  Transmission Date: 20100115
  Serious: Yes (Other)
  Sender: FDA-Public Use
  Company Number: GB-AVENTIS-200920869GDDC

PATIENT
  Age: 61 Year
  Sex: Female

DRUGS (6)
  1. GLYBURIDE [Suspect]
  2. GLYBURIDE [Suspect]
  3. MYCOPHENOLATE MOFETIL [Suspect]
  4. PREDNISONE TAB [Suspect]
  5. SIROLIMUS [Suspect]
  6. THYMOGLOBULIN [Suspect]

REACTIONS (2)
  - DIABETES MELLITUS [None]
  - HYPOGLYCAEMIA [None]
